FAERS Safety Report 9236852 (Version 1)
Quarter: 2013Q2

REPORT INFORMATION
  Report Type: Spontaneous
  Country: US (occurrence: US)
  Receive Date: 20130417
  Receipt Date: 20130417
  Transmission Date: 20140414
  Serious: Yes (Other)
  Sender: FDA-Public Use
  Company Number: US-BAYER-2013-044180

PATIENT
  Sex: Female

DRUGS (2)
  1. ESTRADIOL HEMIHYDRATE (PATCH) [Suspect]
     Dosage: 0,1 MG
     Route: 062
     Dates: start: 2012
  2. PREMARIN [Concomitant]

REACTIONS (8)
  - Drug ineffective [None]
  - Crying [None]
  - Weight decreased [None]
  - Aphagia [None]
  - Vomiting [None]
  - Impaired reasoning [None]
  - Feeling abnormal [None]
  - Alopecia [None]
